FAERS Safety Report 8328450-1 (Version None)
Quarter: 2012Q2

REPORT INFORMATION
  Report Type: 
  Country: None (occurrence: None)
  Receive Date: 20120502
  Receipt Date: 20120502
  Transmission Date: 20120825
  Serious: No
  Sender: FDA-Public Use
  Company Number: None

PATIENT
  Age: 49 Year
  Sex: Female

DRUGS (1)
  1. HALOPERIDOL DECANOATE [Suspect]
     Indication: SCHIZOPHRENIA, PARANOID TYPE
     Dosage: |DOSAGETEXT: 100 MG/ML||STRENGTH: 100 MG/ML||FREQ: Q4 WEEKS||ROUTE: INTRAMUSCULAR|
     Route: 030
     Dates: start: 20060801, end: 20120501

REACTIONS (1)
  - SKIN DISCOLOURATION [None]
